FAERS Safety Report 21561999 (Version 1)
Quarter: 2022Q4

REPORT INFORMATION
  Report Type: Spontaneous
  Country: US (occurrence: None)
  Receive Date: 20221104
  Receipt Date: 20221104
  Transmission Date: 20230112
  Serious: Yes (Hospitalization)
  Sender: FDA-Public Use
  Company Number: None

PATIENT
  Age: 69 Year
  Sex: Female
  Weight: 72.71 kg

DRUGS (20)
  1. IMATINIB MESYLATE [Suspect]
     Active Substance: IMATINIB MESYLATE
     Indication: Chronic myeloid leukaemia
     Dosage: FREQUENCY : DAILY;?
     Route: 048
  2. ADVAIR DISKUS [Concomitant]
     Active Substance: FLUTICASONE PROPIONATE\SALMETEROL XINAFOATE
  3. ALBUTEROL SULFATE [Concomitant]
     Active Substance: ALBUTEROL SULFATE
  4. Albuterol Sulfate Inhalation [Concomitant]
  5. ASPIRIN [Concomitant]
     Active Substance: ASPIRIN
  6. ATORVASTATIN [Concomitant]
     Active Substance: ATORVASTATIN
  7. DALIRESP [Concomitant]
     Active Substance: ROFLUMILAST
  8. EPINEPHRINE [Concomitant]
     Active Substance: EPINEPHRINE
  9. FLUTICASONE PROPIONATE [Concomitant]
     Active Substance: FLUTICASONE PROPIONATE
  10. GUAIFENESIN [Concomitant]
     Active Substance: GUAIFENESIN
  11. Hydroxyzine Ipratropium-Albuterol [Concomitant]
  12. LEVOTHYROXINE SODIUM [Concomitant]
     Active Substance: LEVOTHYROXINE SODIUM
  13. MAGNESIUM OXIDE [Concomitant]
     Active Substance: MAGNESIUM OXIDE
  14. MUCINEX [Concomitant]
     Active Substance: GUAIFENESIN
  15. OMEPRAZOLE [Concomitant]
     Active Substance: OMEPRAZOLE
  16. ONDANSETRON [Concomitant]
     Active Substance: ONDANSETRON
  17. TRELEGY ELLIPTA [Concomitant]
     Active Substance: FLUTICASONE FUROATE\UMECLIDINIUM BROMIDE\VILANTEROL TRIFENATATE
  18. VANCOMYCIN [Concomitant]
     Active Substance: VANCOMYCIN
  19. VITAMIN B12 [Concomitant]
     Active Substance: CYANOCOBALAMIN
  20. VITAMIN D2 [Concomitant]
     Active Substance: ERGOCALCIFEROL

REACTIONS (1)
  - Clostridium difficile infection [None]
